FAERS Safety Report 11612249 (Version 3)
Quarter: 2015Q4

REPORT INFORMATION
  Report Type: Report from Study
  Country: JP (occurrence: JP)
  Receive Date: 20151008
  Receipt Date: 20151106
  Transmission Date: 20160304
  Serious: No
  Sender: FDA-Public Use
  Company Number: PHJP2015JP017317

PATIENT
  Age: 43 Year
  Sex: Female
  Weight: 62 kg

DRUGS (28)
  1. LIORESAL [Concomitant]
     Active Substance: BACLOFEN
     Dosage: 2.5 MG, UNK
     Route: 048
     Dates: end: 20131020
  2. SOLU-MEDROL [Concomitant]
     Active Substance: METHYLPREDNISOLONE SODIUM SUCCINATE
     Indication: PRODUCT USED FOR UNKNOWN INDICATION
     Dosage: 1000 MG, UNK
     Route: 065
     Dates: start: 20120409, end: 20120419
  3. PAXIL [Concomitant]
     Active Substance: PAROXETINE HYDROCHLORIDE
     Dosage: 10 MG, UNK
     Route: 048
  4. GILENYA [Suspect]
     Active Substance: FINGOLIMOD HYDROCHLORIDE
     Dosage: 0.5 MG, QOD
     Route: 048
     Dates: start: 20141211
  5. NATALIZUMAB [Concomitant]
     Active Substance: NATALIZUMAB
     Indication: PRODUCT USED FOR UNKNOWN INDICATION
     Route: 065
  6. INTERFERON [Concomitant]
     Active Substance: INTERFERON
     Indication: PRODUCT USED FOR UNKNOWN INDICATION
     Route: 065
  7. SOLU-MEDROL [Concomitant]
     Active Substance: METHYLPREDNISOLONE SODIUM SUCCINATE
     Dosage: 1000 MG, UNK
     Route: 065
     Dates: start: 20121225, end: 20130107
  8. SOLU-MEDROL [Concomitant]
     Active Substance: METHYLPREDNISOLONE SODIUM SUCCINATE
     Dosage: 500 ML, UNK
     Route: 065
     Dates: start: 20131225, end: 20131225
  9. PREDONINE [Concomitant]
     Active Substance: PREDNISOLONE\PREDNISOLONE ACETATE\PREDNISOLONE SODIUM SUCCINATE
     Indication: PROPHYLAXIS
     Dosage: 5 MG, UNK
     Route: 048
     Dates: end: 20131020
  10. PREDONINE [Concomitant]
     Active Substance: PREDNISOLONE\PREDNISOLONE ACETATE\PREDNISOLONE SODIUM SUCCINATE
     Dosage: 5 MG, QOD
     Route: 048
     Dates: start: 20131021
  11. LIORESAL [Concomitant]
     Active Substance: BACLOFEN
     Indication: PROPHYLAXIS
     Dosage: 5 MG, UNK
     Route: 048
  12. RIVOTRIL [Concomitant]
     Active Substance: CLONAZEPAM
     Dosage: 0.9 MG, UNK
     Route: 048
  13. TRYPTANOL                               /AUS/ [Concomitant]
     Active Substance: AMITRIPTYLINE
     Indication: PROPHYLAXIS
     Dosage: 10 MG, UNK
     Route: 048
  14. GILENYA [Suspect]
     Active Substance: FINGOLIMOD HYDROCHLORIDE
     Indication: MULTIPLE SCLEROSIS
     Dosage: 0.5 MG, QD
     Route: 048
     Dates: start: 20130109, end: 20141210
  15. SOLU-MEDROL [Concomitant]
     Active Substance: METHYLPREDNISOLONE SODIUM SUCCINATE
     Dosage: 500 ML, UNK
     Route: 065
     Dates: start: 20131216, end: 20131216
  16. SOLU-MEDROL [Concomitant]
     Active Substance: METHYLPREDNISOLONE SODIUM SUCCINATE
     Dosage: 1000 ML, UNK
     Route: 065
     Dates: start: 20131220, end: 20131220
  17. SOLU-MEDROL [Concomitant]
     Active Substance: METHYLPREDNISOLONE SODIUM SUCCINATE
     Dosage: 500 ML, UNK
     Route: 065
     Dates: start: 20140106, end: 20140106
  18. SOLU-MEDROL [Concomitant]
     Active Substance: METHYLPREDNISOLONE SODIUM SUCCINATE
     Dosage: 500 ML, UNK
     Route: 065
     Dates: start: 20140519, end: 20140519
  19. SOLU-MEDROL [Concomitant]
     Active Substance: METHYLPREDNISOLONE SODIUM SUCCINATE
     Dosage: 1000 ML, UNK
     Route: 065
     Dates: start: 20140623, end: 20140625
  20. DEPAKENE [Concomitant]
     Active Substance: VALPROIC ACID
     Indication: PROPHYLAXIS
     Dosage: 400 MG, UNK
     Route: 048
     Dates: start: 20140822
  21. SOLU-MEDROL [Concomitant]
     Active Substance: METHYLPREDNISOLONE SODIUM SUCCINATE
     Dosage: 1000 MG, UNK
     Route: 065
     Dates: start: 20120817, end: 20120826
  22. COPAXONE [Concomitant]
     Active Substance: GLATIRAMER ACETATE
     Indication: PRODUCT USED FOR UNKNOWN INDICATION
     Route: 065
     Dates: end: 201211
  23. RIVOTRIL [Concomitant]
     Active Substance: CLONAZEPAM
     Indication: NEURALGIA
     Dosage: 1.8 MG, UNK
     Route: 048
  24. SOLU-MEDROL [Concomitant]
     Active Substance: METHYLPREDNISOLONE SODIUM SUCCINATE
     Dosage: 1000 MG, UNK
     Route: 065
     Dates: start: 20120514, end: 20120516
  25. SOLU-MEDROL [Concomitant]
     Active Substance: METHYLPREDNISOLONE SODIUM SUCCINATE
     Dosage: 1000 MG, UNK
     Route: 065
     Dates: start: 20120708, end: 20120719
  26. PAXIL [Concomitant]
     Active Substance: PAROXETINE HYDROCHLORIDE
     Indication: DEPRESSIVE SYMPTOM
     Dosage: 20 MG, UNK
     Route: 048
  27. DEPAS [Concomitant]
     Active Substance: ETIZOLAM
     Indication: DEPRESSIVE SYMPTOM
     Dosage: 0.5 MG, UNK
     Route: 048
  28. EDIROL [Concomitant]
     Active Substance: ELDECALCITOL
     Indication: PROPHYLAXIS
     Dosage: 0.75 UG, UNK
     Route: 048

REACTIONS (3)
  - Prescribed underdose [Unknown]
  - Neuralgia [Not Recovered/Not Resolved]
  - Musculoskeletal pain [Recovering/Resolving]

NARRATIVE: CASE EVENT DATE: 20131112
